FAERS Safety Report 12795270 (Version 1)
Quarter: 2016Q3

REPORT INFORMATION
  Report Type: Spontaneous
  Country: FR (occurrence: FR)
  Receive Date: 20160929
  Receipt Date: 20160929
  Transmission Date: 20161109
  Serious: No
  Sender: FDA-Public Use
  Company Number: FR-TOLMAR, INC.-2015FR009459

PATIENT
  Sex: Female

DRUGS (1)
  1. ELIGARD [Suspect]
     Active Substance: LEUPROLIDE ACETATE
     Indication: PRODUCT USED FOR UNKNOWN INDICATION
     Route: 065

REACTIONS (3)
  - Needle issue [Unknown]
  - Accidental exposure to product [Unknown]
  - Syringe issue [Unknown]

NARRATIVE: CASE EVENT DATE: 20151009
